FAERS Safety Report 10215077 (Version 2)
Quarter: 2014Q2

REPORT INFORMATION
  Report Type: Spontaneous
  Country: US (occurrence: US)
  Receive Date: 20140603
  Receipt Date: 20140603
  Transmission Date: 20141212
  Serious: No
  Sender: FDA-Public Use
  Company Number: US-MALLINCKRODT-T201401437

PATIENT
  Age: 50 Year
  Sex: Female

DRUGS (2)
  1. OCTREOSCAN [Suspect]
     Indication: NEUROENDOCRINE TUMOUR
     Dosage: 6 MCI, SINGLE
     Route: 042
     Dates: start: 20130905, end: 20130905
  2. OCTREOTIDE [Concomitant]
     Indication: PRODUCT USED FOR UNKNOWN INDICATION
     Dosage: 6 MCI, SINGLE
     Route: 042
     Dates: start: 20130905, end: 20130905

REACTIONS (2)
  - Hypoglycaemia [Recovered/Resolved]
  - Disorientation [Recovered/Resolved]
